FAERS Safety Report 9995531 (Version 1)
Quarter: 2014Q1

REPORT INFORMATION
  Report Type: Report from Study
  Country: US (occurrence: KR)
  Receive Date: 20140311
  Receipt Date: 20140311
  Transmission Date: 20141002
  Serious: Yes (Hospitalization)
  Sender: FDA-Public Use
  Company Number: KR-FRI-1000060407

PATIENT
  Age: 77 Year
  Sex: Male
  Weight: 64 kg

DRUGS (14)
  1. ROFLUMILAST [Suspect]
     Indication: CHRONIC OBSTRUCTIVE PULMONARY DISEASE
     Dosage: 500 MCG
     Route: 048
     Dates: start: 20130527, end: 20130624
  2. ROFLUMILAST [Suspect]
     Dosage: 500 MCG
     Route: 048
     Dates: start: 20130627, end: 20130715
  3. SPIRIVA [Concomitant]
     Dates: start: 20130529
  4. APROVEL TAB [Concomitant]
     Dates: start: 20130524
  5. GLUCOPHAGE [Concomitant]
     Dates: start: 20130524, end: 20130529
  6. DIABEX TAB [Concomitant]
     Dates: start: 20130530
  7. CURAN [Concomitant]
     Dates: start: 20130524, end: 20130529
  8. GASMOTIN TAB [Concomitant]
     Dates: start: 20130524
  9. AVELOX INJ [Concomitant]
     Dates: start: 20130524, end: 20130530
  10. REBAMIPIDE [Concomitant]
     Dates: start: 20130524, end: 20130529
  11. SYMBICORT [Concomitant]
     Dates: start: 20130529
  12. MUCOTRA TAB [Concomitant]
     Dates: start: 20130529
  13. ACTOS [Concomitant]
     Dates: start: 20130529
  14. JANUVIA TAB [Concomitant]
     Dates: start: 20130715

REACTIONS (1)
  - Pyrexia [Recovered/Resolved]
